FAERS Safety Report 7768148-1 (Version None)
Quarter: 2011Q3

REPORT INFORMATION
  Report Type: 
  Country: None (occurrence: None)
  Receive Date: 20110922
  Receipt Date: 20110912
  Transmission Date: 20111222
  Serious: Yes (Hospitalization)
  Sender: FDA-Public Use
  Company Number: US-ACTELION-A-NJ2010-36441

PATIENT

DRUGS (1)
  1. TRACLEER [Suspect]
     Indication: PULMONARY ARTERIAL HYPERTENSION
     Dosage: UNK
     Route: 048
     Dates: start: 20020327

REACTIONS (5)
  - OEDEMA PERIPHERAL [None]
  - CARDIOMEGALY [None]
  - HAEMATEMESIS [None]
  - HEART VALVE INCOMPETENCE [None]
  - ABDOMINAL PAIN UPPER [None]
